FAERS Safety Report 7997763-5 (Version None)
Quarter: 2011Q4

REPORT INFORMATION
  Report Type: 
  Country: None (occurrence: None)
  Receive Date: 20111221
  Receipt Date: 20111219
  Transmission Date: 20120403
  Serious: Yes (Hospitalization)
  Sender: FDA-Public Use
  Company Number: CA-AMGEN-CANSP2011053315

PATIENT
  Age: 60 Year
  Sex: Male

DRUGS (7)
  1. CITALOPRAM [Concomitant]
     Dosage: 20 MG, UNK
  2. CELEBREX [Concomitant]
     Dosage: 200 MG, UNK
  3. RAMIPRIL [Concomitant]
     Dosage: 5 MG, UNK
  4. SYNTHROID [Concomitant]
     Dosage: 0.75 MG, UNK
  5. VITAMIN B-12 [Concomitant]
     Dosage: UNK
  6. ENBREL [Suspect]
     Indication: RHEUMATOID ARTHRITIS
     Dosage: 50 MG, QWK
     Dates: start: 20091008, end: 20110428
  7. APO-ALFUZOSIN [Concomitant]
     Dosage: 10 MG, UNK

REACTIONS (2)
  - PULMONARY OEDEMA [None]
  - LUNG INFECTION [None]
